FAERS Safety Report 6725222-6 (Version None)
Quarter: 2010Q2

REPORT INFORMATION
  Report Type: 
  Country: None (occurrence: None)
  Receive Date: 20100514
  Receipt Date: 20100506
  Transmission Date: 20101027
  Serious: Yes (Other)
  Sender: FDA-Public Use
  Company Number: JP-ASTRAZENECA-2010SE21621

PATIENT
  Age: 56 Year
  Sex: Female
  Weight: 47 kg

DRUGS (6)
  1. SEROQUEL [Suspect]
     Indication: SCHIZOPHRENIA
     Route: 048
     Dates: start: 20100311, end: 20100411
  2. RISPERIDONE [Suspect]
     Route: 048
     Dates: start: 20100311, end: 20100411
  3. AKINETON [Concomitant]
     Route: 048
     Dates: end: 20100411
  4. FERROMIA [Concomitant]
     Route: 048
     Dates: end: 20100411
  5. VEGETAMIN A [Concomitant]
     Route: 048
     Dates: end: 20100411
  6. MAGMITT [Concomitant]
     Route: 048
     Dates: end: 20100411

REACTIONS (3)
  - DRUG EXPOSURE DURING PREGNANCY [None]
  - JAUNDICE [None]
  - LIVER FUNCTION TEST ABNORMAL [None]
